FAERS Safety Report 6168764-7 (Version None)
Quarter: 2009Q2

REPORT INFORMATION
  Report Type: 
  Country: None (occurrence: None)
  Receive Date: 20090427
  Receipt Date: 20090416
  Transmission Date: 20091009
  Serious: Yes (Other)
  Sender: FDA-Public Use
  Company Number: CA-JNJFOC-20090404296

PATIENT
  Sex: Male
  Weight: 86.4 kg

DRUGS (2)
  1. REMICADE [Suspect]
     Route: 042
  2. REMICADE [Suspect]
     Indication: CROHN'S DISEASE
     Route: 042

REACTIONS (4)
  - DRY THROAT [None]
  - FALL [None]
  - FIBULA FRACTURE [None]
  - OROPHARYNGEAL PAIN [None]
